FAERS Safety Report 4586587-7 (Version None)
Quarter: 2005Q1

REPORT INFORMATION
  Report Type: 
  Country: None (occurrence: None)
  Receive Date: 20050218
  Receipt Date: 20040513
  Transmission Date: 20050727
  Serious: Yes (Other)
  Sender: FDA-Public Use
  Company Number: US-BRISTOL-MYERS SQUIBB COMPANY-12586830

PATIENT
  Age: 58 Year
  Sex: Female

DRUGS (5)
  1. CARBOPLATIN [Suspect]
  2. TAXOL [Suspect]
  3. BENADRYL [Concomitant]
     Indication: PREMEDICATION
  4. CIMETIDINE [Concomitant]
     Indication: PREMEDICATION
  5. DECADRON [Concomitant]
     Indication: PREMEDICATION

REACTIONS (2)
  - FLUSHING [None]
  - PARAESTHESIA [None]
